FAERS Safety Report 12976990 (Version 1)
Quarter: 2016Q4

REPORT INFORMATION
  Report Type: Spontaneous
  Country: BR (occurrence: BR)
  Receive Date: 20161128
  Receipt Date: 20161128
  Transmission Date: 20170207
  Serious: No
  Sender: FDA-Public Use
  Company Number: BR-LUPIN PHARMACEUTICALS INC.-2016-03868

PATIENT
  Age: 21 Year
  Sex: Male
  Weight: 52 kg

DRUGS (1)
  1. AZITROMED [Suspect]
     Active Substance: AZITHROMYCIN
     Indication: PRODUCT USED FOR UNKNOWN INDICATION
     Route: 048
     Dates: start: 20160202, end: 20160804

REACTIONS (4)
  - Diarrhoea [Not Recovered/Not Resolved]
  - Dyspnoea [Unknown]
  - Hypersensitivity [None]
  - Headache [Recovered/Resolved]
